FAERS Safety Report 4621158-5 (Version None)
Quarter: 2005Q1

REPORT INFORMATION
  Report Type: 
  Country: None (occurrence: None)
  Receive Date: 20050328
  Receipt Date: 20050318
  Transmission Date: 20050727
  Serious: Yes (Hospitalization)
  Sender: FDA-Public Use
  Company Number: 2005AP01689

PATIENT
  Age: 41 Year
  Sex: Female

DRUGS (16)
  1. IRESSA [Suspect]
     Indication: LIP AND/OR ORAL CAVITY CANCER
     Dates: start: 20050202, end: 20050311
  2. AUGMENTIN '125' [Concomitant]
  3. CEFTAZIDIME [Concomitant]
  4. DEXAMETHASONE [Concomitant]
  5. DIAZEPAM [Concomitant]
  6. OXAZEPAM [Concomitant]
  7. TRYPTIZOL [Concomitant]
  8. FUNGIZONE [Concomitant]
  9. NEURONTIN [Concomitant]
  10. DULCOLAX [Concomitant]
  11. IMPORTAL [Concomitant]
  12. X-PRAEP [Concomitant]
  13. KLYSMA SALINISCH [Concomitant]
  14. DOMPERIDON [Concomitant]
  15. DURAGESIC-100 [Concomitant]
  16. MORPHINE [Concomitant]

REACTIONS (1)
  - SOMNOLENCE [None]
